FAERS Safety Report 15769767 (Version 1)
Quarter: 2018Q4

REPORT INFORMATION
  Report Type: Spontaneous
  Country: US (occurrence: US)
  Receive Date: 20181228
  Receipt Date: 20181228
  Transmission Date: 20190205
  Serious: No
  Sender: FDA-Public Use
  Company Number: US-CIPLA LTD.-2017US21134

PATIENT

DRUGS (3)
  1. LAMOTRIGINE. [Suspect]
     Active Substance: LAMOTRIGINE
     Indication: DEPRESSION
     Dosage: 150 MG, DAILY, (CIPLA)
     Route: 048
  2. LAMOTRIGINE. [Suspect]
     Active Substance: LAMOTRIGINE
     Dosage: UNK, (NEW NORTHSTAR)
     Route: 048
  3. LAMOTRIGINE. [Suspect]
     Active Substance: LAMOTRIGINE
     Dosage: UNK, (ZYDUS)
     Route: 048

REACTIONS (6)
  - Muscle twitching [Unknown]
  - Product substitution issue [Unknown]
  - Feeling abnormal [Unknown]
  - Insomnia [Unknown]
  - Nausea [Unknown]
  - Headache [Unknown]
